FAERS Safety Report 16779950 (Version 2)
Quarter: 2020Q2

REPORT INFORMATION
  Report Type: Spontaneous
  Country: US (occurrence: US)
  Receive Date: 20190906
  Receipt Date: 20200409
  Transmission Date: 20200713
  Serious: No
  Sender: FDA-Public Use
  Company Number: US-GILEAD-2019-0426553

PATIENT
  Sex: Male

DRUGS (36)
  1. AMLODIPINE BESYLATE. [Concomitant]
     Active Substance: AMLODIPINE BESYLATE
  2. LISINOPRIL. [Concomitant]
     Active Substance: LISINOPRIL
  3. TESTOSTERONE. [Concomitant]
     Active Substance: TESTOSTERONE
  4. TRIZIVIR [Concomitant]
     Active Substance: ABACAVIR SULFATE\LAMIVUDINE\ZIDOVUDINE
  5. STRIBILD [Suspect]
     Active Substance: COBICISTAT\ELVITEGRAVIR\EMTRICITABINE\TENOFOVIR DISOPROXIL FUMARATE
     Indication: HIV INFECTION
     Dosage: 1 DOSAGE FORM, QD
     Route: 048
     Dates: start: 2012, end: 2017
  6. BIKTARVY [Concomitant]
     Active Substance: BICTEGRAVIR SODIUM\EMTRICITABINE\TENOFOVIR ALAFENAMIDE FUMARATE
  7. ANDROGEL [Concomitant]
     Active Substance: TESTOSTERONE
  8. AZITHROMYCIN ANHYDROUS. [Concomitant]
     Active Substance: AZITHROMYCIN ANHYDROUS
  9. VIAGRA [Concomitant]
     Active Substance: SILDENAFIL CITRATE
  10. NEVIRAPINE. [Concomitant]
     Active Substance: NEVIRAPINE
  11. ABACAVIR, LAMIVUDINE AND ZIDOVUDINE [Concomitant]
     Active Substance: ABACAVIR SULFATE\LAMIVUDINE\ZIDOVUDINE
  12. FLUTICASONE. [Concomitant]
     Active Substance: FLUTICASONE
  13. DRONABINOL. [Concomitant]
     Active Substance: DRONABINOL
  14. CIALIS [Concomitant]
     Active Substance: TADALAFIL
  15. DOXYCYCLINE HYCLATE. [Concomitant]
     Active Substance: DOXYCYCLINE HYCLATE
  16. VIRAMUNE [Concomitant]
     Active Substance: NEVIRAPINE
  17. EPIDUO [Concomitant]
     Active Substance: ADAPALENE\BENZOYL PEROXIDE
  18. STRIBILD [Suspect]
     Active Substance: COBICISTAT\ELVITEGRAVIR\EMTRICITABINE\TENOFOVIR DISOPROXIL FUMARATE
     Dosage: UNK
     Route: 065
     Dates: start: 201406, end: 201708
  19. GENVOYA [Concomitant]
     Active Substance: COBICISTAT\ELVITEGRAVIR\EMTRICITABINE\TENOFOVIR ALAFENAMIDE FUMARATE
  20. AMLODIPINE/VALSARTAN [Concomitant]
     Active Substance: AMLODIPINE\VALSARTAN
  21. METROGEL [Concomitant]
     Active Substance: METRONIDAZOLE
  22. TRIAMCINOLONE [Concomitant]
     Active Substance: TRIAMCINOLONE
  23. BUPROPION. [Concomitant]
     Active Substance: BUPROPION
  24. NYSTATIN/TRIAMCINOLONE [Concomitant]
     Active Substance: NYSTATIN\TRIAMCINOLONE
  25. DOXEPIN [Concomitant]
     Active Substance: DOXEPIN
  26. CLINDAGEL [Concomitant]
     Active Substance: CLINDAMYCIN PHOSPHATE
  27. VALACYCLOVIR HCL [Concomitant]
     Active Substance: VALACYCLOVIR HYDROCHLORIDE
  28. AMLODIPINE MESILATE;HYDROCHLOROTHIAZIDE;VALSARTAN [Concomitant]
  29. BETAMETHASONE. [Concomitant]
     Active Substance: BETAMETHASONE
  30. LOSARTAN/HCTZ [Concomitant]
     Active Substance: HYDROCHLOROTHIAZIDE\LOSARTAN
  31. MELOXICAM. [Concomitant]
     Active Substance: MELOXICAM
  32. OLMESARTAN/HCTZ KRKA [Concomitant]
  33. BENZONATATE. [Concomitant]
     Active Substance: BENZONATATE
  34. CLOTRIMAZOLE / BETAMETH [Concomitant]
     Active Substance: BETAMETHASONE DIPROPIONATE\CLOTRIMAZOLE
  35. CIPROFLOXACIN. [Concomitant]
     Active Substance: CIPROFLOXACIN
  36. HYDROCODONE/ACETAMINOPHEN [Concomitant]
     Active Substance: ACETAMINOPHEN\HYDROCODONE

REACTIONS (9)
  - Bone loss [Unknown]
  - Pain [Unknown]
  - Bone density decreased [Not Recovered/Not Resolved]
  - Economic problem [Unknown]
  - Anxiety [Unknown]
  - Bone density abnormal [Unknown]
  - Emotional distress [Unknown]
  - Tooth loss [Unknown]
  - Anhedonia [Unknown]
